FAERS Safety Report 4666124-9 (Version None)
Quarter: 2005Q2

REPORT INFORMATION
  Report Type: 
  Country: None (occurrence: None)
  Receive Date: 20050519
  Receipt Date: 20050506
  Transmission Date: 20051028
  Serious: Yes (Death, Other)
  Sender: FDA-Public Use
  Company Number: DE-JNJFOC-20050300961

PATIENT
  Sex: Male
  Weight: 77 kg

DRUGS (5)
  1. DURAGESIC-100 [Suspect]
     Indication: BONE PAIN
     Route: 062
  2. ZOMETA [Concomitant]
  3. BENDAMUSTIN [Concomitant]
     Route: 065
  4. GRANOCYTE [Concomitant]
  5. ERYPO [Concomitant]

REACTIONS (3)
  - BLOOD CREATININE INCREASED [None]
  - MULTIPLE MYELOMA [None]
  - PERSONALITY CHANGE [None]
